FAERS Safety Report 11621852 (Version 1)
Quarter: 2015Q4

REPORT INFORMATION
  Report Type: Spontaneous
  Country: FR (occurrence: FR)
  Receive Date: 20151013
  Receipt Date: 20151013
  Transmission Date: 20160304
  Serious: Yes (Other)
  Sender: FDA-Public Use
  Company Number: FR-009507513-1510FRA002069

PATIENT
  Age: 19 Year
  Sex: Female
  Weight: 90 kg

DRUGS (2)
  1. NEXPLANON [Suspect]
     Active Substance: ETONOGESTREL
     Indication: CONTRACEPTION
     Dosage: UNK
     Route: 059
     Dates: start: 20140818, end: 201509
  2. LIDOCAINE. [Suspect]
     Active Substance: LIDOCAINE
     Indication: LOCAL ANAESTHESIA
     Dosage: UNK
     Route: 058
     Dates: start: 20150925, end: 20150925

REACTIONS (8)
  - Surgery [Recovered/Resolved]
  - General anaesthesia [Recovered/Resolved]
  - Weight increased [Unknown]
  - Device difficult to use [Recovered/Resolved]
  - Metrorrhagia [Unknown]
  - Implant site scar [Unknown]
  - Medical device complication [Recovered/Resolved]
  - Implant site swelling [Unknown]

NARRATIVE: CASE EVENT DATE: 2015
